FAERS Safety Report 23529598 (Version 2)
Quarter: 2024Q1

REPORT INFORMATION
  Report Type: Spontaneous
  Country: RO (occurrence: RO)
  Receive Date: 20240216
  Receipt Date: 20240301
  Transmission Date: 20240409
  Serious: Yes (Other)
  Sender: FDA-Public Use
  Company Number: RO-TEVA-VS-3157214

PATIENT
  Age: 3 Year
  Sex: Male

DRUGS (3)
  1. CARBOPLATIN [Suspect]
     Active Substance: CARBOPLATIN
     Indication: Chemotherapy
     Dosage: 28MG/KG BODY WEIGHT
     Route: 042
  2. ETOPOSIDE [Suspect]
     Active Substance: ETOPOSIDE
     Indication: Chemotherapy
     Dosage: 6MG/KG BODY WEIGHT (DAY 1 AND DAY 2)
     Route: 042
  3. VINCRISTINE [Suspect]
     Active Substance: VINCRISTINE
     Indication: Chemotherapy
     Dosage: VINCRISTINE 0.025MG/KG BODY WEIGHT
     Route: 042

REACTIONS (3)
  - Myelodysplastic syndrome with single lineage dysplasia [Unknown]
  - Gastrointestinal toxicity [Unknown]
  - Neutropenia [Unknown]
